FAERS Safety Report 8571599 (Version 5)
Quarter: 2014Q4

REPORT INFORMATION
  Report Type: Spontaneous
  Country: US (occurrence: US)
  Receive Date: 20120521
  Receipt Date: 20141117
  Transmission Date: 20150529
  Serious: Yes (Death, Hospitalization, Other)
  Sender: FDA-Public Use
  Company Number: US-GLAXOSMITHKLINE-A0978255A

PATIENT
  Age: 87 Year
  Sex: Female
  Weight: 62.5 kg

DRUGS (3)
  1. PAIN MEDICATIONS [Suspect]
     Active Substance: UNSPECIFIED INGREDIENT
     Indication: PAIN
     Dosage: UNKNOWN
     Route: 065
  2. PREDNISONE. [Suspect]
     Active Substance: PREDNISONE
     Indication: PLASMA CELL MYELOMA
     Dosage: 20 MG. DURATION: 2 CYCLES.LABEL STRENGTH: 5 MG.
     Route: 048
     Dates: start: 20100920, end: 20101114
  3. MELPHALAN [Suspect]
     Active Substance: MELPHALAN
     Indication: PLASMA CELL MYELOMA
     Dosage: 8 MG TWICE DAILY X 4 DAYS. DURATION: 2 CYCLES.
     Route: 048
     Dates: start: 20100920, end: 20101114

REACTIONS (10)
  - Blood creatinine increased [Unknown]
  - Renal failure [Unknown]
  - Pain in extremity [Unknown]
  - Plasma cell myeloma [Unknown]
  - Death [Fatal]
  - Neck pain [Unknown]
  - Dehydration [Unknown]
  - Aspiration [Unknown]
  - Asthenia [Unknown]
  - Unresponsive to stimuli [Unknown]

NARRATIVE: CASE EVENT DATE: 20101110
